FAERS Safety Report 7653394-8 (Version None)
Quarter: 2011Q3

REPORT INFORMATION
  Report Type: 
  Country: None (occurrence: None)
  Receive Date: 20110803
  Receipt Date: 20110727
  Transmission Date: 20111222
  Serious: Yes (Other)
  Sender: FDA-Public Use
  Company Number: US-PFIZER INC-2011171175

PATIENT
  Age: 51 Year
  Sex: Female
  Weight: 81 kg

DRUGS (3)
  1. LUFYLLIN [Concomitant]
     Indication: ASTHMA
     Dosage: 400 MG, 2X/DAY
     Route: 048
  2. AZULFIDINE [Suspect]
     Indication: ARTHRITIS
     Dosage: 1000 MG, 2X/DAY
     Route: 048
  3. AZULFIDINE [Suspect]
     Indication: COLITIS ULCERATIVE

REACTIONS (3)
  - ASTHMA [None]
  - NASAL CONGESTION [None]
  - SINUS DISORDER [None]
